FAERS Safety Report 4272653-2 (Version None)
Quarter: 2004Q1

REPORT INFORMATION
  Report Type: 
  Country: None (occurrence: None)
  Receive Date: 20040115
  Receipt Date: 20040115
  Transmission Date: 20041129
  Serious: Yes (Hospitalization)
  Sender: FDA-Public Use
  Company Number: None

PATIENT
  Sex: Female
  Weight: 65.5901 kg

DRUGS (2)
  1. XELODA [Suspect]
     Indication: PANCREATIC CARCINOMA
     Dosage: 2000 MG/M2 DAY
     Dates: start: 20031201, end: 20031218
  2. RADIATION [Suspect]
     Dosage: 50.4 GY 288R
     Dates: start: 20031201, end: 20031218

REACTIONS (2)
  - CHILLS [None]
  - PYREXIA [None]
